FAERS Safety Report 9036498 (Version 1)
Quarter: 2013Q1

REPORT INFORMATION
  Report Type: Spontaneous
  Country: US (occurrence: None)
  Receive Date: 20130122
  Receipt Date: 20130122
  Transmission Date: 20140127
  Serious: Yes (Life-Threatening)
  Sender: FDA-Public Use
  Company Number: None

PATIENT
  Age: 58 Year
  Sex: Female
  Weight: 93.9 kg

DRUGS (1)
  1. METFOMIN HYDROCHLORIDE [Suspect]
     Indication: PRODUCT SIZE ISSUE
     Dosage: 1 TABLET 1 OR 2 DAILY ORAL
     Route: 048
     Dates: start: 20120912, end: 20120912

REACTIONS (4)
  - Product size issue [None]
  - Foreign body [None]
  - Dyspnoea [None]
  - Dysphagia [None]
